FAERS Safety Report 7820406-8 (Version None)
Quarter: 2011Q4

REPORT INFORMATION
  Report Type: 
  Country: None (occurrence: None)
  Receive Date: 20111018
  Receipt Date: 20111010
  Transmission Date: 20120403
  Serious: Yes (Death)
  Sender: FDA-Public Use
  Company Number: US-CELGENEUS-163-21880-11090254

PATIENT
  Sex: Male

DRUGS (9)
  1. REVLIMID [Suspect]
     Dosage: 15 MILLIGRAM
     Route: 048
     Dates: start: 20110809
  2. ALLOPURINOL [Concomitant]
     Route: 065
  3. DOXEPIN [Concomitant]
     Route: 065
  4. DOXYCYCLINE HYCLATE [Concomitant]
     Route: 065
  5. SPIRONOLACTONE [Concomitant]
     Route: 065
  6. CYCLOBENZAPRINE [Concomitant]
     Route: 065
  7. DEXAMETHASONE [Concomitant]
     Route: 065
  8. PREDNISONE [Concomitant]
     Route: 065
  9. AMBIEN [Concomitant]
     Route: 065

REACTIONS (1)
  - LIVER DISORDER [None]
